FAERS Safety Report 6746787-4 (Version None)
Quarter: 2010Q2

REPORT INFORMATION
  Report Type: 
  Country: None (occurrence: None)
  Receive Date: 20100528
  Receipt Date: 20091023
  Transmission Date: 20101027
  Serious: No
  Sender: FDA-Public Use
  Company Number: A0813181A

PATIENT
  Age: 67 Year
  Sex: Female

DRUGS (8)
  1. VENTOLIN [Suspect]
     Indication: ASTHMA
     Dosage: 2PUFF FOUR TIMES PER DAY
     Route: 055
     Dates: start: 20090801
  2. ALBUTEROL WITH NEBULIZER [Concomitant]
  3. SEREVENT [Concomitant]
  4. ASMANEX TWISTHALER [Concomitant]
  5. ATROVENT [Concomitant]
  6. BLOOD PRESSURE MEDICATION [Concomitant]
  7. PREDNISONE TAB [Concomitant]
  8. DOXYCYCLINE [Concomitant]

REACTIONS (3)
  - BRONCHITIS [None]
  - DRUG INEFFECTIVE [None]
  - DYSPNOEA [None]
